FAERS Safety Report 14537312 (Version 1)
Quarter: 2018Q1

REPORT INFORMATION
  Report Type: Report from Study
  Country: DE (occurrence: DE)
  Receive Date: 20180215
  Receipt Date: 20180215
  Transmission Date: 20180509
  Serious: Yes (Hospitalization, Other)
  Sender: FDA-Public Use
  Company Number: DE-SHIRE-DE201805870

PATIENT

DRUGS (1)
  1. ADVATE [Suspect]
     Active Substance: ANTIHEMOPHILIC FACTOR, HUMAN RECOMBINANT
     Indication: FACTOR VIII DEFICIENCY
     Dosage: UNK, 3X A WEEK
     Route: 042
     Dates: start: 20140924

REACTIONS (3)
  - Gingivitis [Unknown]
  - Gingival abscess [Unknown]
  - Dental caries [Unknown]

NARRATIVE: CASE EVENT DATE: 20180204
